FAERS Safety Report 16948379 (Version 1)
Quarter: 2019Q4

REPORT INFORMATION
  Report Type: Spontaneous
  Country: ES (occurrence: ES)
  Receive Date: 20191022
  Receipt Date: 20191022
  Transmission Date: 20200122
  Serious: Yes (Death, Hospitalization, Other)
  Sender: FDA-Public Use
  Company Number: ES-SUN PHARMACEUTICAL INDUSTRIES LTD-2019RR-224514

PATIENT
  Age: 67 Year
  Sex: Male
  Weight: 66 kg

DRUGS (5)
  1. OXALIPLATIN. [Suspect]
     Active Substance: OXALIPLATIN
     Indication: ADENOCARCINOMA OF COLON
     Dosage: UNK ()
     Route: 065
     Dates: start: 2017
  2. CAPECITABINA (1224A) [Suspect]
     Active Substance: CAPECITABINE
     Indication: COLON NEOPLASM
     Dosage: 3.3 MILLIGRAM, DAILY
     Route: 048
     Dates: start: 20171030
  3. DOMPERIDONA (865A) [Concomitant]
     Indication: PROPHYLAXIS OF NAUSEA AND VOMITING
     Dosage: 30 MILLIGRAM, DAILY
     Route: 048
     Dates: start: 20171024, end: 20171112
  4. MIRTAZAPINA (2704A) [Concomitant]
     Active Substance: MIRTAZAPINE
     Indication: DEPRESSION
     Dosage: 15 MILLIGRAM, DAILY
     Route: 048
     Dates: start: 20171106, end: 20171112
  5. GRANISETRON (2594A) [Concomitant]
     Indication: PROPHYLAXIS OF NAUSEA AND VOMITING
     Dosage: 1 MILLIGRAM, DAILY
     Route: 048
     Dates: start: 20171024, end: 20171112

REACTIONS (29)
  - Rectal haemorrhage [Fatal]
  - Haematemesis [Fatal]
  - Acute kidney injury [Fatal]
  - Hyperaemia [Fatal]
  - Somnolence [Fatal]
  - Multiple organ dysfunction syndrome [Fatal]
  - Thrombosis [Fatal]
  - Dehydration [Fatal]
  - Gastric dilatation [Fatal]
  - Gastrointestinal haemorrhage [Fatal]
  - Condition aggravated [Fatal]
  - Diarrhoea [Fatal]
  - Anaemia [Fatal]
  - Tachypnoea [Fatal]
  - Abdominal distension [Fatal]
  - Hypovolaemic shock [Fatal]
  - Asthenia [Fatal]
  - Oesophagitis [Fatal]
  - Haemorrhage [Fatal]
  - Renal failure [Fatal]
  - Toxicity to various agents [Fatal]
  - Vomiting [Fatal]
  - Intestinal dilatation [Fatal]
  - Diarrhoea [Fatal]
  - Mucosal inflammation [Fatal]
  - Vomiting [Fatal]
  - Enteritis [Fatal]
  - Oesophageal haemorrhage [Fatal]
  - Tachycardia [Fatal]

NARRATIVE: CASE EVENT DATE: 2017
